FAERS Safety Report 6387295-2 (Version None)
Quarter: 2009Q4

REPORT INFORMATION
  Report Type: 
  Country: None (occurrence: None)
  Receive Date: 20091002
  Receipt Date: 20090929
  Transmission Date: 20100525
  Serious: Yes (Hospitalization)
  Sender: FDA-Public Use
  Company Number: US-MERCK-0909USA04920

PATIENT

DRUGS (1)
  1. COZAAR [Suspect]
     Route: 048

REACTIONS (2)
  - HYPERSENSITIVITY [None]
  - INTESTINAL OBSTRUCTION [None]
